FAERS Safety Report 6009192-4 (Version None)
Quarter: 2008Q4

REPORT INFORMATION
  Report Type: 
  Country: None (occurrence: None)
  Receive Date: 20081217
  Receipt Date: 20081209
  Transmission Date: 20090506
  Serious: Yes (Hospitalization)
  Sender: FDA-Public Use
  Company Number: US-GENENTECH-270890

PATIENT
  Sex: Female
  Weight: 68.481 kg

DRUGS (11)
  1. BEVACIZUMAB [Suspect]
     Indication: OVARIAN CANCER RECURRENT
     Dosage: 10 MG/KG, Q21D
     Route: 042
     Dates: start: 20080519
  2. CARBOPLATIN [Suspect]
     Indication: NEOPLASM MALIGNANT
     Dosage: 3 AUC, Q21D
     Dates: start: 20080519
  3. GEMCITABINE HCL [Suspect]
     Indication: NEOPLASM MALIGNANT
     Dosage: 1000 MG/M2, Q21D
     Dates: start: 20080519
  4. CITALOPRAM [Concomitant]
     Indication: DRUG USE FOR UNKNOWN INDICATION
  5. AMBIEN [Concomitant]
     Indication: DRUG USE FOR UNKNOWN INDICATION
  6. LIPITOR [Concomitant]
     Indication: DRUG USE FOR UNKNOWN INDICATION
  7. TRAZODONE HCL [Concomitant]
     Indication: DRUG USE FOR UNKNOWN INDICATION
  8. HYDROXYZINE [Concomitant]
     Indication: DRUG USE FOR UNKNOWN INDICATION
  9. ALOXI [Concomitant]
     Indication: DRUG USE FOR UNKNOWN INDICATION
  10. DECADRON [Suspect]
     Indication: DRUG USE FOR UNKNOWN INDICATION
  11. ATIVAN [Concomitant]
     Indication: DRUG USE FOR UNKNOWN INDICATION

REACTIONS (1)
  - SMALL INTESTINAL OBSTRUCTION [None]
